FAERS Safety Report 25885901 (Version 1)
Quarter: 2025Q4

REPORT INFORMATION
  Report Type: Spontaneous
  Country: TR (occurrence: TR)
  Receive Date: 20251006
  Receipt Date: 20251006
  Transmission Date: 20260117
  Serious: Yes (Other)
  Sender: VIIV
  Company Number: TR-GSK-TR2025GSK126804

PATIENT
  Age: 49 Year
  Sex: Male

DRUGS (3)
  1. LAMIVUDINE [Suspect]
     Active Substance: LAMIVUDINE
     Indication: Chronic hepatitis B
     Dosage: UNK
  2. ETANERCEPT [Concomitant]
     Active Substance: ETANERCEPT
     Indication: Chronic hepatitis B
     Dosage: 50 MG, WE
  3. SULFASALAZINE [Concomitant]
     Active Substance: SULFASALAZINE
     Indication: Ankylosing spondylitis
     Dosage: UNK 2X2

REACTIONS (2)
  - Hepatitis B reactivation [Recovering/Resolving]
  - Drug resistance [Unknown]
